FAERS Safety Report 16642692 (Version 2)
Quarter: 2019Q3

REPORT INFORMATION
  Report Type: Report from Study
  Country: DE (occurrence: DE)
  Receive Date: 20190729
  Receipt Date: 20190802
  Transmission Date: 20191004
  Serious: Yes (Other)
  Sender: FDA-Public Use
  Company Number: DE-PFIZER INC-2019323032

PATIENT

DRUGS (3)
  1. CISPLATIN. [Suspect]
     Active Substance: CISPLATIN
     Indication: PLEURAL MESOTHELIOMA MALIGNANT
     Dosage: 200 MG, INTO THE 5,000 ML 0.9% SALINE SOLUTION FOR 90 MINUTES AT 42 ?
     Route: 038
  2. DOXORUBICIN HCL [Suspect]
     Active Substance: DOXORUBICIN HYDROCHLORIDE
     Indication: PLEURAL MESOTHELIOMA MALIGNANT
     Dosage: 100 MG, INTO THE 5,000 ML 0.9% SALINE SOLUTION FOR 90 MINUTES AT 42 ?
     Route: 038
  3. SALINE SOLUTION [Concomitant]
     Active Substance: SODIUM CHLORIDE
     Dosage: UNK
     Route: 033

REACTIONS (1)
  - Renal failure [Recovered/Resolved]
